FAERS Safety Report 15947236 (Version 1)
Quarter: 2019Q1

REPORT INFORMATION
  Report Type: Spontaneous
  Country: FR (occurrence: FR)
  Receive Date: 20190211
  Receipt Date: 20190211
  Transmission Date: 20190417
  Serious: Yes (Other)
  Sender: FDA-Public Use
  Company Number: FR-PFIZER INC-2019052937

PATIENT
  Age: 20 Year
  Sex: Male

DRUGS (3)
  1. IMOVANE [Suspect]
     Active Substance: ZOPICLONE
     Dosage: UNK
     Route: 065
  2. XANAX [Suspect]
     Active Substance: ALPRAZOLAM
     Dosage: UNK
     Route: 065
  3. NEO CODION [Suspect]
     Active Substance: CODEINE\GRINDELIA HIRSUTULA WHOLE\SULFOGAIACOL
     Dosage: UNK
     Route: 065

REACTIONS (3)
  - Drug dependence [Not Recovered/Not Resolved]
  - Drug abuse [Not Recovered/Not Resolved]
  - Prescription form tampering [Not Recovered/Not Resolved]
